FAERS Safety Report 9061709 (Version 1)
Quarter: 2013Q1

REPORT INFORMATION
  Report Type: Spontaneous
  Country: US (occurrence: None)
  Receive Date: 20130122
  Receipt Date: 20130122
  Transmission Date: 20140127
  Serious: Yes (Death)
  Sender: FDA-Public Use
  Company Number: AUR-APL-2013-00645

PATIENT
  Age: 49 Year
  Sex: Female

DRUGS (3)
  1. CARISOPRODOL (CARISOPRODOL) [Suspect]
     Dosage: UNKNOWN
  2. MEPROBAMATE [Suspect]
     Dosage: ORAL
     Route: 048
  3. DIAZEPAM (DIAZEPAM) [Suspect]
     Dosage: UNKNOWN

REACTIONS (2)
  - Drug abuse [None]
  - Toxicity to various agents [None]
